FAERS Safety Report 18654186 (Version 1)
Quarter: 2020Q4

REPORT INFORMATION
  Report Type: Spontaneous
  Country: US (occurrence: US)
  Receive Date: 20201223
  Receipt Date: 20201223
  Transmission Date: 20210114
  Serious: Yes (Other)
  Sender: FDA-Public Use
  Company Number: US-SLATE RUN PHARMACEUTICALS-20US000346

PATIENT

DRUGS (2)
  1. VANCOMYCIN HYDROCHLORIDE USP [Suspect]
     Active Substance: VANCOMYCIN HYDROCHLORIDE
     Indication: ENDOCARDITIS
  2. VANCOMYCIN HYDROCHLORIDE USP [Suspect]
     Active Substance: VANCOMYCIN HYDROCHLORIDE
     Indication: STAPHYLOCOCCAL INFECTION
     Dosage: UNK
     Route: 042

REACTIONS (8)
  - Dyspnoea [Recovering/Resolving]
  - Lethargy [Unknown]
  - Lung infiltration [Unknown]
  - Confusional state [Unknown]
  - Diarrhoea [Unknown]
  - Discomfort [Unknown]
  - Troponin increased [Unknown]
  - Drug reaction with eosinophilia and systemic symptoms [Recovering/Resolving]
